FAERS Safety Report 9099273 (Version 1)
Quarter: 2013Q1

REPORT INFORMATION
  Report Type: Spontaneous
  Country: US (occurrence: US)
  Receive Date: 20130214
  Receipt Date: 20130214
  Transmission Date: 20140127
  Serious: No
  Sender: FDA-Public Use
  Company Number: US-COVIDIEN/TYCO HEALTHCARE/MALLINCKRODT-T201300173

PATIENT
  Age: 54 Year
  Sex: Male

DRUGS (4)
  1. FENTANYL TRANSDERMAL SYSTEM [Suspect]
     Indication: PAIN
     Dosage: 25 MCG/HR Q 48 HRS
     Dates: start: 2012, end: 201212
  2. FENTANYL TRANSDERMAL SYSTEM [Suspect]
     Dosage: 50 MCG/HR Q 48 HRS
     Dates: start: 201212
  3. MONOXIL [Concomitant]
     Indication: BLOOD PRESSURE ABNORMAL
  4. OXYGEN [Concomitant]

REACTIONS (2)
  - Pain [Not Recovered/Not Resolved]
  - Mobility decreased [Not Recovered/Not Resolved]
